FAERS Safety Report 21349360 (Version 2)
Quarter: 2022Q4

REPORT INFORMATION
  Report Type: Spontaneous
  Country: US (occurrence: US)
  Receive Date: 20220919
  Receipt Date: 20221221
  Transmission Date: 20230113
  Serious: No
  Sender: FDA-Public Use
  Company Number: US-BRISTOL-MYERS SQUIBB COMPANY-2022-108085

PATIENT
  Age: 51 Year
  Sex: Female

DRUGS (2)
  1. ZEPOSIA [Suspect]
     Active Substance: OZANIMOD HYDROCHLORIDE
     Indication: Multiple sclerosis
     Route: 048
     Dates: start: 20220823
  2. ZEPOSIA [Suspect]
     Active Substance: OZANIMOD HYDROCHLORIDE
     Indication: Multiple sclerosis
     Dosage: FREQUENCY FOR ZEPOSIA (7 DAY STARTER PAK): TAKE 0.23 MG BY MOUTH 1 TIME A DAY FOR 4 DAYS THEN TAKE 0
     Route: 048
     Dates: start: 20220823

REACTIONS (4)
  - Mental disorder [Unknown]
  - Malaise [Unknown]
  - Diarrhoea [Unknown]
  - Condition aggravated [Unknown]
